FAERS Safety Report 17305666 (Version 1)
Quarter: 2020Q1

REPORT INFORMATION
  Report Type: Spontaneous
  Country: BE (occurrence: BE)
  Receive Date: 20200123
  Receipt Date: 20200123
  Transmission Date: 20200409
  Serious: Yes (Other)
  Sender: FDA-Public Use
  Company Number: BE-MYLANLABS-2020M1006471

PATIENT
  Sex: Male

DRUGS (10)
  1. AMIKACIN. [Suspect]
     Active Substance: AMIKACIN
     Indication: INTESTINAL PERFORATION
     Dosage: UNK UNK, UNK
  2. CEFOTAXIME [Suspect]
     Active Substance: CEFOTAXIME SODIUM
     Indication: INTESTINAL PERFORATION
  3. VANCOMYCIN [Suspect]
     Active Substance: VANCOMYCIN
     Indication: INTESTINAL PERFORATION
  4. METRONIDAZOLE. [Suspect]
     Active Substance: METRONIDAZOLE
     Indication: INTESTINAL PERFORATION
     Dosage: UNK
  5. CEFOTAXIME [Suspect]
     Active Substance: CEFOTAXIME SODIUM
     Indication: SEPSIS
     Dosage: UNK UNK, UNK
  6. VANCOMYCIN [Suspect]
     Active Substance: VANCOMYCIN
     Indication: SEPSIS
     Dosage: UNK
  7. AMIKACIN. [Suspect]
     Active Substance: AMIKACIN
     Indication: SEPSIS
  8. FLUCONAZOLE. [Suspect]
     Active Substance: FLUCONAZOLE
     Indication: INTESTINAL PERFORATION
  9. METRONIDAZOLE. [Suspect]
     Active Substance: METRONIDAZOLE
     Indication: SEPSIS
  10. FLUCONAZOLE. [Suspect]
     Active Substance: FLUCONAZOLE
     Indication: SEPSIS
     Dosage: UNK

REACTIONS (4)
  - Escherichia infection [Unknown]
  - Coma [Unknown]
  - Brain abscess [Unknown]
  - Drug resistance [Unknown]
